FAERS Safety Report 4832024-4 (Version None)
Quarter: 2005Q4

REPORT INFORMATION
  Report Type: 
  Country: None (occurrence: None)
  Receive Date: 20051116
  Receipt Date: 20051102
  Transmission Date: 20060501
  Serious: Yes (Other)
  Sender: FDA-Public Use
  Company Number: PHNU2005DE01883

PATIENT
  Age: 76 Year
  Sex: Male

DRUGS (1)
  1. VISUDYNE [Suspect]
     Indication: MACULAR DEGENERATION
     Dates: start: 20041011, end: 20041011

REACTIONS (11)
  - CHOROIDAL NEOVASCULARISATION [None]
  - CONDITION AGGRAVATED [None]
  - CORNEAL STAINING [None]
  - DETACHMENT OF RETINAL PIGMENT EPITHELIUM [None]
  - MACULAR DEGENERATION [None]
  - METAMORPHOPSIA [None]
  - RETINAL EXUDATES [None]
  - RETINAL HAEMORRHAGE [None]
  - SUBRETINAL FIBROSIS [None]
  - VISION BLURRED [None]
  - VISUAL ACUITY REDUCED [None]
